FAERS Safety Report 9822047 (Version 1)
Quarter: 2014Q1

REPORT INFORMATION
  Report Type: Spontaneous
  Country: MX (occurrence: MX)
  Receive Date: 20140116
  Receipt Date: 20140116
  Transmission Date: 20141002
  Serious: Yes (Other)
  Sender: FDA-Public Use
  Company Number: MX-SA-2014SA003870

PATIENT
  Age: 77 Year
  Sex: Female
  Weight: 41 kg

DRUGS (3)
  1. APROVEL [Suspect]
     Indication: HYPERTENSION
     Dosage: STRENGTH: 150 MG
     Route: 048
     Dates: start: 2005, end: 201312
  2. APROVEL [Suspect]
     Indication: HYPERTENSION
     Dosage: STRENGTH: 150 MG
     Route: 048
     Dates: start: 2005, end: 201312
  3. ASPIRINA [Concomitant]
     Indication: CARDIOVASCULAR EVENT PROPHYLAXIS
     Route: 048

REACTIONS (1)
  - Infarction [Recovered/Resolved]
